FAERS Safety Report 23718074 (Version 1)
Quarter: 2024Q2

REPORT INFORMATION
  Report Type: Report from Study
  Country: US (occurrence: US)
  Receive Date: 20240408
  Receipt Date: 20240408
  Transmission Date: 20240716
  Serious: Yes (Hospitalization)
  Sender: FDA-Public Use
  Company Number: US-TAKEDA-2023TUS080061

PATIENT
  Sex: Male

DRUGS (7)
  1. PONATINIB [Suspect]
     Active Substance: PONATINIB
     Indication: Myeloid leukaemia
     Dosage: 45 MILLIGRAM, QD
     Route: 048
  2. PONATINIB [Suspect]
     Active Substance: PONATINIB
     Indication: Chronic myeloid leukaemia
     Dosage: 30 MILLIGRAM, QD
     Route: 048
  3. PONATINIB [Suspect]
     Active Substance: PONATINIB
     Dosage: UNK
     Route: 048
  4. PONATINIB [Suspect]
     Active Substance: PONATINIB
     Dosage: 30 MILLIGRAM, QD
     Route: 048
  5. HYDROXYUREA [Concomitant]
     Active Substance: HYDROXYUREA
     Dosage: UNK
     Route: 065
  6. SPRYCEL [Concomitant]
     Active Substance: DASATINIB
     Dosage: UNK
     Route: 065
  7. ALLOPURINOL [Concomitant]
     Active Substance: ALLOPURINOL
     Dosage: UNK
     Route: 065

REACTIONS (6)
  - Blast cells [Unknown]
  - Memory impairment [Unknown]
  - Depression [Unknown]
  - Malaise [Unknown]
  - Product dose omission issue [Unknown]
  - Off label use [Unknown]
